FAERS Safety Report 19610224 (Version 1)
Quarter: 2021Q3

REPORT INFORMATION
  Report Type: Spontaneous
  Country: FR (occurrence: FR)
  Receive Date: 20210726
  Receipt Date: 20210726
  Transmission Date: 20211014
  Serious: Yes (Other)
  Sender: FDA-Public Use
  Company Number: FR-MYLANLABS-2021M1045047

PATIENT
  Age: 64 Year
  Sex: Female

DRUGS (4)
  1. ECULIZUMAB [Concomitant]
     Active Substance: ECULIZUMAB
     Indication: THROMBOTIC MICROANGIOPATHY
  2. PACLITAXEL. [Suspect]
     Active Substance: PACLITAXEL
     Indication: PARANEOPLASTIC SYNDROME
     Dosage: UNK UNK, CYCLE, DOSAGE: TWO 3?WEEK CYCLES WERE ADMINISTERED
     Route: 065
  3. PACLITAXEL. [Suspect]
     Active Substance: PACLITAXEL
     Indication: THROMBOTIC MICROANGIOPATHY
  4. ECULIZUMAB [Concomitant]
     Active Substance: ECULIZUMAB
     Indication: PARANEOPLASTIC SYNDROME
     Dosage: 900 MILLIGRAM, QW
     Route: 065
     Dates: start: 2019, end: 2019

REACTIONS (2)
  - Therapy non-responder [Unknown]
  - Off label use [Unknown]
